FAERS Safety Report 8615061-3 (Version None)
Quarter: 2012Q3

REPORT INFORMATION
  Report Type: 
  Country: None (occurrence: None)
  Receive Date: 20120823
  Receipt Date: 20120817
  Transmission Date: 20120928
  Serious: Yes (Hospitalization)
  Sender: FDA-Public Use
  Company Number: PHEH2012US014769

PATIENT
  Sex: Female

DRUGS (2)
  1. DIOVAN HCT [Suspect]
     Dosage: 1 DF (320/25 MG), QD
     Route: 048
  2. METFORMIN [Concomitant]
     Dosage: UNK UKN, UNK
     Dates: start: 20080101

REACTIONS (1)
  - UTERINE CANCER [None]
